FAERS Safety Report 7766780-2 (Version None)
Quarter: 2011Q3

REPORT INFORMATION
  Report Type: 
  Country: None (occurrence: None)
  Receive Date: 20110922
  Receipt Date: 20110114
  Transmission Date: 20111222
  Serious: Yes (Hospitalization)
  Sender: FDA-Public Use
  Company Number: US-ASTRAZENECA-2011SE02568

PATIENT
  Age: 51 Year
  Sex: Female
  Weight: 59 kg

DRUGS (8)
  1. PERCOCET [Concomitant]
  2. XANAX [Concomitant]
  3. SOMA [Concomitant]
  4. TRAZODONE HCL [Concomitant]
  5. MIRAPEX [Concomitant]
  6. SERTRALAPRAM [Concomitant]
  7. OXYGEN [Concomitant]
  8. SEROQUEL XR [Suspect]
     Indication: BIPOLAR DISORDER
     Route: 048
     Dates: start: 20100101

REACTIONS (2)
  - PNEUMONIA [None]
  - WRONG DRUG ADMINISTERED [None]
